FAERS Safety Report 9152832 (Version 1)
Quarter: 2013Q1

REPORT INFORMATION
  Report Type: Report from Study
  Country: US (occurrence: US)
  Receive Date: 20130309
  Receipt Date: 20130309
  Transmission Date: 20140127
  Serious: Yes (Other)
  Sender: FDA-Public Use
  Company Number: US-US-EMD SERONO, INC.-7197435

PATIENT
  Sex: Female

DRUGS (5)
  1. REBIF [Suspect]
     Indication: MULTIPLE SCLEROSIS
     Route: 058
     Dates: start: 20020302
  2. REBIF [Suspect]
     Route: 058
     Dates: start: 2012
  3. REBIF [Suspect]
     Route: 058
  4. REBIF [Suspect]
     Dosage: ONCE OR TWICE PER WEEK
     Route: 058
  5. ADDERALL [Concomitant]
     Indication: PRODUCT USED FOR UNKNOWN INDICATION

REACTIONS (5)
  - Optic neuritis [Unknown]
  - Insomnia [Unknown]
  - Injection site pain [Recovering/Resolving]
  - Influenza like illness [Unknown]
  - Fatigue [Recovering/Resolving]
